FAERS Safety Report 6019813-8 (Version None)
Quarter: 2008Q4

REPORT INFORMATION
  Report Type: 
  Country: None (occurrence: None)
  Receive Date: 20081224
  Receipt Date: 20081209
  Transmission Date: 20090506
  Serious: No
  Sender: FDA-Public Use
  Company Number: US-B.I. PHARMACEUTICALS,INC./RIDGEFIELD-2008-BP-17484BP

PATIENT
  Sex: Female

DRUGS (13)
  1. SPIRIVA [Suspect]
     Indication: CHRONIC OBSTRUCTIVE PULMONARY DISEASE
     Dosage: 18MCG
     Route: 055
  2. SPIRIVA [Suspect]
     Indication: DYSPNOEA
  3. ADVAIR DISKUS 250/50 [Concomitant]
     Dates: end: 20070101
  4. SIMVASTATIN [Concomitant]
  5. GABAPENTIN [Concomitant]
  6. LEVOXYL [Concomitant]
  7. METOPROLOL [Concomitant]
  8. COZAAR [Concomitant]
  9. TOPROL-XL [Concomitant]
  10. PREVACID [Concomitant]
  11. VITAMINS [Concomitant]
  12. FOLIC ACID [Concomitant]
  13. THYROID 1.12 [Concomitant]

REACTIONS (2)
  - RETINAL OPERATION [None]
  - VISION BLURRED [None]
